FAERS Safety Report 5142302-X (Version None)
Quarter: 2006Q4

REPORT INFORMATION
  Report Type: 
  Country: None (occurrence: None)
  Receive Date: 20061102
  Receipt Date: 20061025
  Transmission Date: 20070319
  Serious: Yes (Other)
  Sender: FDA-Public Use
  Company Number: 2006UW20788

PATIENT
  Sex: Male

DRUGS (4)
  1. SEROQUEL [Suspect]
     Route: 048
  2. FLUANXOL DEPOT [Suspect]
     Route: 030
  3. ZYPREXA [Concomitant]
  4. PIPOTIAZINE [Concomitant]

REACTIONS (2)
  - PAIN [None]
  - VEIN DISORDER [None]
